FAERS Safety Report 5853576-1 (Version None)
Quarter: 2008Q4

REPORT INFORMATION
  Report Type: 
  Country: None (occurrence: None)
  Receive Date: 20080822
  Receipt Date: 20080812
  Transmission Date: 20090506
  Serious: Yes (Other)
  Sender: FDA-Public Use
  Company Number: US-WYE-H05572808

PATIENT
  Age: 37 Year
  Sex: Female

DRUGS (17)
  1. EFFEXOR [Interacting]
  2. CLONAZEPAM [Suspect]
  3. RESTORIL [Suspect]
  4. ULTRAM [Suspect]
  5. HYDROCODONE BITARTRATE [Suspect]
  6. AMBIEN [Concomitant]
  7. SOMA [Concomitant]
  8. ALBUTEROL [Concomitant]
  9. DETROL [Concomitant]
  10. ASPIRIN [Concomitant]
  11. BENICAR [Concomitant]
  12. CELEBREX [Concomitant]
  13. PROTONIX [Concomitant]
  14. SYNTHROID [Concomitant]
  15. ADVICOR [Concomitant]
  16. MOBIC [Concomitant]
  17. METHADONE HCL [Interacting]

REACTIONS (7)
  - CARDIOMEGALY [None]
  - CARDIOVASCULAR DISORDER [None]
  - DEPRESSED LEVEL OF CONSCIOUSNESS [None]
  - DRUG INTERACTION [None]
  - DRUG TOXICITY [None]
  - HEPATOSPLENOMEGALY [None]
  - PULMONARY CONGESTION [None]
